FAERS Safety Report 8111123-8 (Version None)
Quarter: 2012Q1

REPORT INFORMATION
  Report Type: 
  Country: None (occurrence: None)
  Receive Date: 20120127
  Receipt Date: 20120113
  Transmission Date: 20120608
  Serious: Yes (Hospitalization, Other)
  Sender: FDA-Public Use
  Company Number: 2012PROUSA00936

PATIENT
  Age: 69 Year
  Sex: Male
  Weight: 97.4 kg

DRUGS (9)
  1. FOSAMAX [Concomitant]
  2. PROVENGE [Suspect]
     Indication: PROSTATE CANCER METASTATIC
     Dosage: 250 ML, SINGLE, INTRAVENOUS
     Route: 042
     Dates: start: 20111219, end: 20111219
  3. TRIBENZOR (AMLODIPINE BESILATE, HYDROCHLOROTHIAZIDE, OLMESARTAN MEDOXO [Concomitant]
  4. FENTANYL [Suspect]
     Indication: SEDATION
     Dosage: 300 MCG, INTRAVENOUS
     Route: 042
     Dates: start: 20120106, end: 20120106
  5. ASPIRIN [Concomitant]
  6. CALCIUM CARBONATE [Concomitant]
  7. MIDAZOLAM HCL [Suspect]
     Indication: SEDATION
     Dosage: 8 MG, INTRAVENOUS
     Route: 042
     Dates: start: 20120106, end: 20120106
  8. BISOPROLOL FUMARATE [Concomitant]
  9. LIPITOR [Concomitant]

REACTIONS (18)
  - BLOOD ALBUMIN DECREASED [None]
  - RENAL FAILURE CHRONIC [None]
  - URETERIC OBSTRUCTION [None]
  - DISEASE PROGRESSION [None]
  - HYDRONEPHROSIS [None]
  - PARADOXICAL DRUG REACTION [None]
  - OEDEMA PERIPHERAL [None]
  - UPPER RESPIRATORY TRACT INFECTION [None]
  - FATIGUE [None]
  - RENAL FAILURE ACUTE [None]
  - ABDOMINAL PAIN UPPER [None]
  - ANAEMIA [None]
  - GASTROINTESTINAL HAEMORRHAGE [None]
  - RENAL CYST [None]
  - DYSPNOEA [None]
  - CONSTIPATION [None]
  - ARTERIOSCLEROSIS CORONARY ARTERY [None]
  - LUNG NEOPLASM [None]
